FAERS Safety Report 9554710 (Version 3)
Quarter: 2013Q4

REPORT INFORMATION
  Report Type: Spontaneous
  Country: PL (occurrence: PL)
  Receive Date: 20130926
  Receipt Date: 20131113
  Transmission Date: 20140711
  Serious: Yes (Death, Hospitalization, Other)
  Sender: FDA-Public Use
  Company Number: PL-AMGEN-POLSP2013067108

PATIENT
  Age: 57 Year
  Sex: Female
  Weight: 84 kg

DRUGS (6)
  1. ENBREL [Suspect]
     Indication: RHEUMATOID ARTHRITIS
     Dosage: 50 MG/WEEK
     Route: 058
     Dates: start: 20110824, end: 20130812
  2. TRITACE [Concomitant]
     Indication: HYPERTENSION
     Dosage: 10 MG A DAY
     Dates: start: 2010
  3. MOVALIS [Concomitant]
     Indication: RHEUMATOID ARTHRITIS
     Dosage: 15 MG A DAY
     Dates: start: 2011
  4. IPP                                /01263204/ [Concomitant]
     Indication: PROPHYLAXIS AGAINST GASTROINTESTINAL ULCER
     Dosage: 20 MG, UNK
     Dates: start: 2011
  5. TENSART HCT [Concomitant]
     Dosage: UNK
  6. NEDAL [Concomitant]
     Dosage: 5 MG, DAILY

REACTIONS (17)
  - Acute respiratory distress syndrome [Fatal]
  - Interstitial lung disease [Fatal]
  - Acute respiratory failure [Unknown]
  - Bronchioloalveolar carcinoma [Unknown]
  - Pericardial fibrosis [Unknown]
  - Myocardial fibrosis [Unknown]
  - Hyperthyroidism [Unknown]
  - Thrombosis [Unknown]
  - Cardiac hypertrophy [Unknown]
  - Thyroid neoplasm [Unknown]
  - General physical health deterioration [Unknown]
  - Arthralgia [Unknown]
  - Diarrhoea [Unknown]
  - Feeling abnormal [Unknown]
  - Arteriosclerosis [Unknown]
  - Hepatic steatosis [Unknown]
  - Bronchitis bacterial [Unknown]
